FAERS Safety Report 17369271 (Version 1)
Quarter: 2020Q1

REPORT INFORMATION
  Report Type: Spontaneous
  Country: US (occurrence: US)
  Receive Date: 20200203
  Receipt Date: 20200203
  Transmission Date: 20200409
  Serious: Yes (Death)
  Sender: FDA-Public Use
  Company Number: None

PATIENT
  Age: 87 Year
  Sex: Female

DRUGS (8)
  1. MORPHINE SUL SOL 100/5 ML [Concomitant]
  2. SILDENAFIL. [Suspect]
     Active Substance: SILDENAFIL
     Dosage: ?          OTHER FREQUENCY:3 TIMES WEEKLY;?
     Route: 048
     Dates: start: 20180608, end: 20200201
  3. SENNA TAB 8.6 MG [Concomitant]
  4. LORAZEPAM CON 2 MG/ML [Concomitant]
  5. ACETAMINOPHEN TAB 325 MG [Concomitant]
  6. HYOSCYAMINE TAB 0.125 MG [Concomitant]
  7. IPRATROPIUM/ SOL ALBUTEROL [Concomitant]
     Active Substance: ALBUTEROL\IPRATROPIUM BROMIDE
  8. BISACODYL SUP 10 MG [Concomitant]

REACTIONS (1)
  - Death [None]
